FAERS Safety Report 5611646-7 (Version None)
Quarter: 2008Q1

REPORT INFORMATION
  Report Type: 
  Country: None (occurrence: None)
  Receive Date: 20080201
  Receipt Date: 20080126
  Transmission Date: 20080703
  Serious: Yes (Other)
  Sender: FDA-Public Use
  Company Number: US-PFIZER INC-2008008805

PATIENT
  Sex: Male
  Weight: 65.909 kg

DRUGS (6)
  1. VIAGRA [Suspect]
     Indication: ERECTILE DYSFUNCTION
  2. ZOCOR [Concomitant]
  3. NIACIN [Concomitant]
  4. THYROID HORMONES [Concomitant]
  5. TYLENOL [Concomitant]
  6. IBUPROFEN [Concomitant]

REACTIONS (3)
  - CYANOPSIA [None]
  - JOINT DISLOCATION [None]
  - VISION BLURRED [None]
